FAERS Safety Report 8963240 (Version 1)
Quarter: 2012Q4

REPORT INFORMATION
  Report Type: Report from Study
  Country: BE (occurrence: BE)
  Receive Date: 20121214
  Receipt Date: 20121214
  Transmission Date: 20130627
  Serious: Yes (Hospitalization)
  Sender: FDA-Public Use
  Company Number: BE-PFIZER INC-2012310945

PATIENT
  Age: 76 Year
  Sex: Male

DRUGS (48)
  1. OMEPRAZOLE [Concomitant]
     Dosage: 20 mg, 1x/day
     Route: 048
     Dates: start: 20040924
  2. AREDIA [Concomitant]
     Dosage: 45 mg, every 3 months
     Route: 042
     Dates: start: 20050829
  3. AUREOMYCIN [Concomitant]
     Dosage: 1 DF, 4x/day
     Route: 048
     Dates: start: 20040706, end: 20040713
  4. CEFACIDAL [Concomitant]
     Dosage: 1000 mg, 1x/day
     Route: 042
     Dates: start: 20040627, end: 20040628
  5. CIPROXINE [Concomitant]
     Dosage: 500 mg, 1x/day
     Route: 048
     Dates: start: 20040927, end: 20041007
  6. DIOVANE [Concomitant]
     Dosage: 80 mg, 1x/day
     Route: 048
     Dates: start: 20050209
  7. FLUDEX [Concomitant]
     Dosage: 2.5 mg, 1x/day
     Route: 048
     Dates: start: 20050613
  8. FRAXIPARINE [Concomitant]
     Dosage: 0.3 ml, 1x/day
     Route: 058
     Dates: start: 20041002, end: 20041018
  9. INSULIN [Concomitant]
     Dosage: 11.3 IU, 1x/day
     Route: 042
     Dates: start: 20040627, end: 20040629
  10. LASIX [Concomitant]
     Dosage: 40 mg, 1x/day
     Route: 042
     Dates: start: 20040629, end: 20040630
  11. LASIX [Concomitant]
     Dosage: 20 mg, 1x/day
     Route: 042
     Dates: start: 20040701, end: 20040701
  12. LASIX [Concomitant]
     Dosage: 40 mg, 1x/day
     Route: 048
     Dates: start: 20040702, end: 20040703
  13. LASIX [Concomitant]
     Dosage: 40 mg, 1x/day
     Route: 048
     Dates: start: 20040707, end: 20040708
  14. LASIX [Concomitant]
     Dosage: 40 mg, 1x/day
     Route: 048
     Dates: start: 20040930, end: 20041003
  15. NEORECORMON ^BOEHRINGER MANNHEIM^ [Concomitant]
     Dosage: 3000 IU, 1 in 2 wk
     Route: 058
     Dates: start: 20040819, end: 20040908
  16. RYDENE [Concomitant]
     Dosage: 52 mg, 1x/day
     Route: 042
     Dates: start: 20040627, end: 20040629
  17. SELOZOK [Concomitant]
     Dosage: 50 mg, 1x/day
     Route: 048
     Dates: start: 20050330
  18. MEDROL [Suspect]
     Indication: PROPHYLAXIS AGAINST RENAL TRANSPLANT REJECTION
     Dosage: 4 mg, 1x/day
     Route: 048
     Dates: start: 20040630
  19. SOLU-MEDROL [Suspect]
     Indication: PROPHYLAXIS AGAINST RENAL TRANSPLANT REJECTION
     Dosage: 80 mg, 1x/day
     Route: 042
     Dates: start: 20040627, end: 20040630
  20. MYCOPHENOLATE MOFETIL [Suspect]
     Dosage: 500 mg, 2x/day
     Route: 048
     Dates: start: 20040627, end: 20040627
  21. MYCOPHENOLATE MOFETIL [Suspect]
     Dosage: 1000 mg, 2x/day
     Route: 048
     Dates: start: 20040628, end: 20040718
  22. MYCOPHENOLATE MOFETIL [Suspect]
     Dosage: 500 mg, 3x/day
     Route: 048
     Dates: start: 20040719, end: 20040915
  23. MYCOPHENOLATE MOFETIL [Suspect]
     Dosage: 500 mg, 2x/day
     Route: 048
     Dates: start: 20040916, end: 20040917
  24. MYCOPHENOLATE MOFETIL [Suspect]
     Dosage: 250 mg, 3x/day
     Route: 048
     Dates: start: 20040918, end: 20040920
  25. MYCOPHENOLATE MOFETIL [Suspect]
     Dosage: 500 mg, 3x/day
     Route: 048
     Dates: start: 20040921, end: 20040923
  26. MYCOPHENOLATE MOFETIL [Suspect]
     Dosage: 500 mg, 2x/day
     Route: 048
     Dates: start: 20040924, end: 20040924
  27. MYCOPHENOLATE MOFETIL [Suspect]
     Dosage: 500 mg, 1x/day
     Route: 048
     Dates: start: 20040925, end: 20041004
  28. MYCOPHENOLATE MOFETIL [Suspect]
     Dosage: 500 mg, 2x/day
     Route: 048
     Dates: start: 20041005, end: 20041005
  29. MYCOPHENOLATE MOFETIL [Suspect]
     Dosage: 500 mg, 3x/day
     Route: 048
     Dates: start: 20041006, end: 20041102
  30. MYCOPHENOLATE MOFETIL [Suspect]
     Dosage: 500 mg, 2x/day
     Route: 048
     Dates: start: 20041103, end: 20050323
  31. MYCOPHENOLATE MOFETIL [Suspect]
     Dosage: 250 mg, 2x/day
     Route: 048
     Dates: start: 20050324
  32. DACLIZUMAB [Suspect]
     Dosage: 120 mg, 1 Total
     Route: 042
     Dates: start: 20040627, end: 20040627
  33. DACLIZUMAB [Suspect]
     Dosage: 60 mg, 1 in 2 wk
     Route: 042
     Dates: start: 20040712
  34. TACROLIMUS [Suspect]
     Indication: PROPHYLAXIS AGAINST RENAL TRANSPLANT REJECTION
     Dosage: 1 mg, 2x/day
     Route: 048
     Dates: start: 20040627, end: 20041004
  35. TACROLIMUS [Suspect]
     Dosage: 0.5 mg, 2x/day
     Route: 048
     Dates: start: 20041005, end: 20041012
  36. TACROLIMUS [Suspect]
     Dosage: 2 mg, 2x/day
     Route: 048
     Dates: start: 20041013, end: 20041102
  37. TACROLIMUS [Suspect]
     Dosage: 2 mg, 2x/day
     Route: 048
     Dates: start: 20041103, end: 20041124
  38. TACROLIMUS [Suspect]
     Dosage: 0.5 mg, 2x/day
     Route: 048
     Dates: start: 20041125, end: 20050329
  39. TACROLIMUS [Suspect]
     Dosage: 1 mg, 2x/day
     Route: 048
     Dates: start: 20050330
  40. BACTRIM FORTE [Concomitant]
     Dosage: 400 mg, 1x/day
     Route: 048
     Dates: start: 20040702, end: 20041008
  41. AMLOR [Concomitant]
     Dosage: 5 mg, 1x/day
     Route: 048
     Dates: start: 20040629, end: 20050309
  42. ZOVIRAX [Concomitant]
     Dosage: 800 mg, 2x/day
     Route: 048
     Dates: start: 20040706, end: 20040726
  43. CYMEVENE [Concomitant]
     Dosage: 100 mg, 1x/day
     Route: 042
     Dates: start: 20040628, end: 20040706
  44. CYMEVENE [Concomitant]
     Dosage: 500 mg, 4x/day
     Route: 048
     Dates: start: 20040727, end: 20040921
  45. CYMEVENE [Concomitant]
     Dosage: 1000 mg, 1x/day
     Route: 048
     Dates: start: 20041004, end: 20041013
  46. TAVANIC [Concomitant]
     Dosage: 250 mg, 1x/day
     Route: 042
     Dates: start: 20040627, end: 20040629
  47. TAVANIC [Concomitant]
     Dosage: 250 mg, 1x/day
     Route: 048
     Dates: start: 20040922, end: 20040922
  48. TAVANIC [Concomitant]
     Dosage: 250 mg, 2x/day
     Route: 048
     Dates: start: 20040923, end: 20040928

REACTIONS (2)
  - Lung infection [Recovered/Resolved]
  - Parkinson^s disease [Unknown]
